FAERS Safety Report 24879806 (Version 1)
Quarter: 2025Q1

REPORT INFORMATION
  Report Type: Spontaneous
  Country: IN (occurrence: IN)
  Receive Date: 20250123
  Receipt Date: 20250123
  Transmission Date: 20250408
  Serious: Yes (Other)
  Sender: PFIZER
  Company Number: IN-PFIZER INC-PV202300100116

PATIENT
  Age: 55 Year
  Sex: Male
  Weight: 76.8 kg

DRUGS (7)
  1. LORLATINIB [Suspect]
     Active Substance: LORLATINIB
     Indication: Lung carcinoma cell type unspecified stage IV
     Dosage: 50 MG, 1X/DAY
     Route: 048
     Dates: start: 20230529
  2. LORLATINIB [Suspect]
     Active Substance: LORLATINIB
     Dosage: 50 MG, 1X/DAY
     Route: 048
     Dates: start: 20230530
  3. LORLATINIB [Suspect]
     Active Substance: LORLATINIB
     Dosage: 50 MG, 1X/DAY
     Route: 048
     Dates: start: 20240530
  4. LORLATINIB [Suspect]
     Active Substance: LORLATINIB
     Dosage: 75 MG, 1X/DAY
     Route: 048
     Dates: start: 20241007
  5. LORLATINIB [Suspect]
     Active Substance: LORLATINIB
     Dosage: 75 MG, 1X/DAY
     Route: 048
     Dates: start: 20241021
  6. LORLATINIB [Suspect]
     Active Substance: LORLATINIB
     Dosage: 100 MG, 1X/DAY
     Route: 048
     Dates: start: 20250107
  7. MECMAXOL [Concomitant]
     Dosage: UNK, 1X/DAY

REACTIONS (9)
  - Blood pressure increased [Unknown]
  - Platelet count decreased [Unknown]
  - Weight increased [Unknown]
  - Headache [Unknown]
  - Vomiting [Unknown]
  - Head discomfort [Unknown]
  - Blood triglycerides increased [Unknown]
  - Dyslipidaemia [Unknown]
  - Irritability [Unknown]
